APPROVED DRUG PRODUCT: CLEOCIN T
Active Ingredient: CLINDAMYCIN PHOSPHATE
Strength: EQ 1% BASE
Dosage Form/Route: SOLUTION;TOPICAL
Application: A062363 | Product #001
Applicant: PHARMACIA AND UPJOHN CO
Approved: Feb 8, 1982 | RLD: No | RS: No | Type: DISCN